FAERS Safety Report 9471050 (Version 1)
Quarter: 2013Q3

REPORT INFORMATION
  Report Type: Spontaneous
  Country: US (occurrence: US)
  Receive Date: 20130822
  Receipt Date: 20130822
  Transmission Date: 20140515
  Serious: No
  Sender: FDA-Public Use
  Company Number: US-BAYER-2013-100094

PATIENT
  Age: 52 Year
  Sex: Female

DRUGS (1)
  1. CLIMARA PRO [Suspect]
     Indication: OSTEOPOROSIS
     Dosage: 0.045MG/0.015MG/DAY
     Route: 061
     Dates: start: 2010

REACTIONS (7)
  - Drug dose omission [None]
  - Depressed mood [None]
  - Headache [None]
  - Crying [None]
  - Insomnia [None]
  - Asthenia [None]
  - Incorrect dose administered [None]
